FAERS Safety Report 18034501 (Version 2)
Quarter: 2021Q2

REPORT INFORMATION
  Report Type: Spontaneous
  Country: US (occurrence: US)
  Receive Date: 20200716
  Receipt Date: 20210525
  Transmission Date: 20210717
  Serious: Yes (Other)
  Sender: FDA-Public Use
  Company Number: US-GILEAD-2020-0482800

PATIENT
  Age: 41 Year
  Sex: Male
  Weight: 69.4 kg

DRUGS (45)
  1. ATRIPLA [Suspect]
     Active Substance: EFAVIRENZ\EMTRICITABINE\TENOFOVIR DISOPROXIL FUMARATE
     Dosage: 600, 200, 300,
     Route: 048
     Dates: start: 20141113
  2. GABAPENTIN. [Concomitant]
     Active Substance: GABAPENTIN
  3. SULFAMETHOXAZOLE [Concomitant]
     Active Substance: SULFAMETHOXAZOLE
  4. DICYCLOMINE [Concomitant]
     Active Substance: DICYCLOMINE HYDROCHLORIDE
  5. ARIPIPRAZOLE. [Concomitant]
     Active Substance: ARIPIPRAZOLE
  6. ATRIPLA [Suspect]
     Active Substance: EFAVIRENZ\EMTRICITABINE\TENOFOVIR DISOPROXIL FUMARATE
     Indication: HIV INFECTION
     Dosage: 600, 200, 300, 30
     Route: 048
     Dates: start: 201302, end: 201909
  7. BACTRIM DS [Concomitant]
     Active Substance: SULFAMETHOXAZOLE\TRIMETHOPRIM
  8. METOPROLOL TARTRATE. [Concomitant]
     Active Substance: METOPROLOL TARTRATE
  9. EFFEXOR [Concomitant]
     Active Substance: VENLAFAXINE HYDROCHLORIDE
  10. ACETYL L?CARNITINE [ACETYLCARNITINE] [Concomitant]
  11. BICILLINE [Concomitant]
  12. CITALOPRAM [Concomitant]
     Active Substance: CITALOPRAM HYDROBROMIDE
  13. PROCTOFOAM HC [Concomitant]
     Active Substance: HYDROCORTISONE ACETATE\PRAMOXINE HYDROCHLORIDE
  14. ZUBSOLV [Concomitant]
     Active Substance: BUPRENORPHINE HYDROCHLORIDE\NALOXONE HYDROCHLORIDE
  15. FEXOFENADINE [FEXOFENADINE HYDROCHLORIDE] [Concomitant]
  16. SERTRALINE [Concomitant]
     Active Substance: SERTRALINE HYDROCHLORIDE
  17. NIZORAL [Concomitant]
     Active Substance: KETOCONAZOLE
  18. VICODIN [Concomitant]
     Active Substance: ACETAMINOPHEN\HYDROCODONE BITARTRATE
  19. LIDODERM [Concomitant]
     Active Substance: LIDOCAINE
  20. PROAIR HFA [Concomitant]
     Active Substance: ALBUTEROL SULFATE
  21. QUINAPRIL. [Concomitant]
     Active Substance: QUINAPRIL
  22. NASONEX [Concomitant]
     Active Substance: MOMETASONE FUROATE
  23. ROBAXIN [Concomitant]
     Active Substance: METHOCARBAMOL
  24. CELEXA [Concomitant]
     Active Substance: CITALOPRAM HYDROBROMIDE
  25. HYDROXYZINE PAMOATE. [Concomitant]
     Active Substance: HYDROXYZINE PAMOATE
  26. VALTREX [Concomitant]
     Active Substance: VALACYCLOVIR HYDROCHLORIDE
  27. LORATADINE. [Concomitant]
     Active Substance: LORATADINE
  28. BACLOFEN. [Concomitant]
     Active Substance: BACLOFEN
  29. TRIMETHOPRIM. [Concomitant]
     Active Substance: TRIMETHOPRIM
  30. TRAZODONE [Concomitant]
     Active Substance: TRAZODONE HYDROCHLORIDE
  31. CLOBETASOL PROPIONATE. [Concomitant]
     Active Substance: CLOBETASOL PROPIONATE
  32. TAMSULOSIN HCL [Concomitant]
     Active Substance: TAMSULOSIN HYDROCHLORIDE
  33. ALPRAZOLAM. [Concomitant]
     Active Substance: ALPRAZOLAM
  34. XANAX [Concomitant]
     Active Substance: ALPRAZOLAM
  35. ANTIVERT [DIHYDROERGOCRISTINE;LOMIFYLLINE] [Concomitant]
     Active Substance: DIHYDROERGOCRISTINE\LOMIFYLLINE
  36. PNEUMOVAX 23 [Concomitant]
     Active Substance: PNEUMOCOCCAL VACCINE, POLYVALENT 23
  37. PRILOSEC [Concomitant]
     Active Substance: OMEPRAZOLE MAGNESIUM
  38. SUBOXONE [Concomitant]
     Active Substance: BUPRENORPHINE HYDROCHLORIDE\NALOXONE HYDROCHLORIDE
  39. ATRIPLA [Suspect]
     Active Substance: EFAVIRENZ\EMTRICITABINE\TENOFOVIR DISOPROXIL FUMARATE
     Indication: ACQUIRED IMMUNODEFICIENCY SYNDROME
     Dosage: 600, 200, 300,
     Route: 048
     Dates: start: 201405, end: 20141113
  40. CIPROFLOXACIN. [Concomitant]
     Active Substance: CIPROFLOXACIN
  41. MULTIVITAMINS [VITAMINS NOS] [Concomitant]
     Active Substance: VITAMINS
  42. ALPHA LIPOIC ACID [Concomitant]
     Active Substance: .ALPHA.-LIPOIC ACID
  43. NICOTINE. [Concomitant]
     Active Substance: NICOTINE
  44. ACETYLCARNITINE [Concomitant]
     Active Substance: ACETYLCARNITINE
  45. METHADONE [Concomitant]
     Active Substance: METHADONE HYDROCHLORIDE

REACTIONS (18)
  - Abdominal pain upper [Unknown]
  - Gastritis [Unknown]
  - Abnormal dreams [Unknown]
  - Pain in extremity [Unknown]
  - Muscle spasms [Unknown]
  - Haematuria [Unknown]
  - Renal cyst [Unknown]
  - Urinary tract infection [Unknown]
  - Diarrhoea [Unknown]
  - Chronic kidney disease [Unknown]
  - Neuropathy peripheral [Not Recovered/Not Resolved]
  - Dysuria [Unknown]
  - Cough [Unknown]
  - Back pain [Not Recovered/Not Resolved]
  - Major depression [Unknown]
  - Suicidal ideation [Unknown]
  - Obesity [Unknown]
  - Duodenitis [Unknown]

NARRATIVE: CASE EVENT DATE: 20130412
